FAERS Safety Report 6752294-5 (Version None)
Quarter: 2010Q2

REPORT INFORMATION
  Report Type: 
  Country: None (occurrence: None)
  Receive Date: 20100602
  Receipt Date: 20100524
  Transmission Date: 20101027
  Serious: Yes (Other)
  Sender: FDA-Public Use
  Company Number: PHHY2010US24011

PATIENT
  Sex: Female
  Weight: 117.46 kg

DRUGS (1)
  1. EXTAVIA [Suspect]
     Indication: MULTIPLE SCLEROSIS
     Dosage: 0.125 MG, QOD
     Route: 058
     Dates: start: 20100326

REACTIONS (3)
  - BREAST CANCER [None]
  - INFLUENZA LIKE ILLNESS [None]
  - MALAISE [None]
